FAERS Safety Report 24416607 (Version 1)
Quarter: 2024Q4

REPORT INFORMATION
  Report Type: Spontaneous
  Country: US (occurrence: None)
  Receive Date: 20241007
  Receipt Date: 20241007
  Transmission Date: 20250115
  Serious: Yes (Other)
  Sender: Public
  Company Number: None

PATIENT
  Age: 26 Year
  Sex: Female
  Weight: 71.2 kg

DRUGS (2)
  1. SKYRIZI [Suspect]
     Active Substance: RISANKIZUMAB-RZAA
     Indication: Crohn^s disease
     Dosage: OTHER FREQUENCY : EVERY 4 WEEKS;?
     Route: 042
     Dates: start: 20240730, end: 20240924
  2. RISANKIZUMAB [Concomitant]
     Active Substance: RISANKIZUMAB

REACTIONS (3)
  - Aspartate aminotransferase increased [None]
  - Alanine aminotransferase increased [None]
  - Thrombocytopenia [None]

NARRATIVE: CASE EVENT DATE: 20240924
